FAERS Safety Report 18929599 (Version 1)
Quarter: 2021Q1

REPORT INFORMATION
  Report Type: Spontaneous
  Country: HU (occurrence: HU)
  Receive Date: 20210223
  Receipt Date: 20210223
  Transmission Date: 20210420
  Serious: Yes (Death, Other)
  Sender: FDA-Public Use
  Company Number: HU-SEATTLE GENETICS-2021SGN00438

PATIENT
  Age: 69 Year
  Sex: Female

DRUGS (2)
  1. ADCETRIS [Suspect]
     Active Substance: BRENTUXIMAB VEDOTIN
     Dosage: 131 MILLIGRAM
     Route: 065
     Dates: start: 20200226
  2. ADCETRIS [Suspect]
     Active Substance: BRENTUXIMAB VEDOTIN
     Indication: CUTANEOUS T-CELL LYMPHOMA
     Dosage: 124 MILLIGRAM
     Route: 042
     Dates: start: 20200205, end: 20200226

REACTIONS (7)
  - Thrombocytopenia [Unknown]
  - Tumour lysis syndrome [Fatal]
  - Cutaneous T-cell lymphoma [Fatal]
  - Hepatic enzyme increased [Unknown]
  - Pyrexia [Unknown]
  - Cognitive disorder [Unknown]
  - Disseminated intravascular coagulation [Fatal]

NARRATIVE: CASE EVENT DATE: 202003
